FAERS Safety Report 21379823 (Version 2)
Quarter: 2022Q4

REPORT INFORMATION
  Report Type: Spontaneous
  Country: US (occurrence: US)
  Receive Date: 20220927
  Receipt Date: 20221003
  Transmission Date: 20230112
  Serious: Yes (Death, Hospitalization, Other)
  Sender: FDA-Public Use
  Company Number: US-009507513-2209USA007815

PATIENT
  Age: 48 Year
  Sex: Male

DRUGS (1)
  1. WELIREG [Suspect]
     Active Substance: BELZUTIFAN
     Dosage: 40MG, 2 TABLETS DAILY
     Route: 048
     Dates: start: 20220209

REACTIONS (3)
  - Malignant neoplasm progression [Fatal]
  - Pneumonia [Unknown]
  - Underdose [Unknown]

NARRATIVE: CASE EVENT DATE: 20220101
